FAERS Safety Report 21444198 (Version 1)
Quarter: 2022Q4

REPORT INFORMATION
  Report Type: Spontaneous
  Country: FR (occurrence: FR)
  Receive Date: 20221012
  Receipt Date: 20221012
  Transmission Date: 20230113
  Serious: Yes (Other)
  Sender: FDA-Public Use
  Company Number: FR-AFSSAPS-PP20220497

PATIENT
  Age: 48 Year
  Sex: Female
  Weight: 64 kg

DRUGS (4)
  1. DOCETAXEL [Suspect]
     Active Substance: DOCETAXEL
     Indication: Breast cancer
     Dosage: 160 MILLIGRAM, CYCLICAL
     Route: 042
     Dates: start: 20220124, end: 20220124
  2. DOCETAXEL [Suspect]
     Active Substance: DOCETAXEL
     Dosage: UNK
     Route: 065
     Dates: start: 20220124
  3. MODERNA COVID-19 VACCINE [Concomitant]
     Active Substance: ELASOMERAN
     Indication: Product used for unknown indication
     Dosage: UNK
     Route: 065
     Dates: start: 20211214
  4. PNEUMOVAX 23 [Concomitant]
     Active Substance: PNEUMOCOCCAL VACCINE, POLYVALENT 23
     Indication: Product used for unknown indication
     Dosage: UNK
     Route: 065
     Dates: start: 20220112

REACTIONS (2)
  - Colitis [Not Recovered/Not Resolved]
  - Pericarditis [Not Recovered/Not Resolved]

NARRATIVE: CASE EVENT DATE: 20220201
